FAERS Safety Report 8513739-3 (Version None)
Quarter: 2012Q3

REPORT INFORMATION
  Report Type: 
  Country: None (occurrence: None)
  Receive Date: 20120717
  Receipt Date: 20120707
  Transmission Date: 20120928
  Serious: Yes (Hospitalization)
  Sender: FDA-Public Use
  Company Number: US-BRISTOL-MYERS SQUIBB COMPANY-16713737

PATIENT
  Age: 65 Year
  Sex: Male

DRUGS (16)
  1. LIDODERM [Concomitant]
  2. ALUMINIUM SULFATE [Concomitant]
     Dosage: 1 PACKET
     Route: 061
  3. NYSTATIN [Concomitant]
  4. MAGNESIUM OXIDE [Concomitant]
     Dosage: 1 DF = UNITS NOS
  5. ERBITUX [Suspect]
     Indication: LARYNGEAL CANCER
     Dosage: EXP DATE:1/13,02/13, 11/13 TEST DOSAGE:100MG,300MGX1
     Dates: start: 20120625
  6. LASIX [Concomitant]
     Dosage: 44 MG - AM, 70MG - PM
     Route: 048
  7. ZOFRAN [Concomitant]
  8. PANCRELIPASE [Concomitant]
  9. AMIODARONE HCL [Concomitant]
  10. LOPRESSOR [Concomitant]
     Route: 048
  11. BENADRYL [Concomitant]
  12. HYDROMORPHONE HCL [Concomitant]
  13. ACETAMINOPHEN [Concomitant]
     Route: 048
  14. NEXIUM [Concomitant]
  15. REGLAN [Concomitant]
     Route: 048
  16. ZYVOX [Concomitant]

REACTIONS (2)
  - LEUKOCYTOSIS [None]
  - BODY TEMPERATURE INCREASED [None]
